FAERS Safety Report 24105455 (Version 4)
Quarter: 2024Q3

REPORT INFORMATION
  Report Type: Spontaneous
  Country: CO (occurrence: CO)
  Receive Date: 20240717
  Receipt Date: 20240821
  Transmission Date: 20241016
  Serious: No
  Sender: AMGEN
  Company Number: CO-AMGEN-COLSP2024132868

PATIENT

DRUGS (2)
  1. PEGFILGRASTIM [Suspect]
     Active Substance: PEGFILGRASTIM
     Indication: Acute lymphocytic leukaemia
     Dosage: 6 MILLIGRAM, Q3WK
     Route: 058
  2. PEGFILGRASTIM [Suspect]
     Active Substance: PEGFILGRASTIM
     Dosage: 6 MILLIGRAM, Q3WK
     Route: 058

REACTIONS (2)
  - Product preparation error [Unknown]
  - Drug dose omission by device [Unknown]

NARRATIVE: CASE EVENT DATE: 20240630
